FAERS Safety Report 22102021 (Version 1)
Quarter: 2023Q1

REPORT INFORMATION
  Report Type: Spontaneous
  Country: US (occurrence: None)
  Receive Date: 20230315
  Receipt Date: 20230315
  Transmission Date: 20230417
  Serious: Yes (Hospitalization)
  Sender: FDA-Public Use
  Company Number: None

PATIENT
  Age: 56 Year
  Sex: Female
  Weight: 78.75 kg

DRUGS (5)
  1. AVSOLA [Suspect]
     Active Substance: INFLIXIMAB-AXXQ
     Indication: Rheumatoid arthritis
     Dosage: OTHER QUANTITY : 1 INJECTION(S)?OTHER FREQUENCY : ONCE EVERY 2 WEEKS?
     Route: 042
     Dates: start: 20220622, end: 20220804
  2. LEVOTHYROXINE [Concomitant]
     Active Substance: LEVOTHYROXINE
  3. vprednisone [Concomitant]
  4. VITAMINS D3 [Concomitant]
  5. FOLIC ACID [Concomitant]
     Active Substance: FOLIC ACID

REACTIONS (7)
  - Blister [None]
  - Blister [None]
  - Pain [None]
  - Infection [None]
  - Wound [None]
  - Injection related reaction [None]
  - Stress [None]

NARRATIVE: CASE EVENT DATE: 20220815
